FAERS Safety Report 6027117-2 (Version None)
Quarter: 2009Q1

REPORT INFORMATION
  Report Type: 
  Country: None (occurrence: None)
  Receive Date: 20090105
  Receipt Date: 20081229
  Transmission Date: 20090719
  Serious: Yes (Life-Threatening, Hospitalization)
  Sender: FDA-Public Use
  Company Number: US-BAYER-200813885BCC

PATIENT
  Age: 73 Year
  Sex: Female
  Weight: 91 kg

DRUGS (1)
  1. ALEVE [Suspect]
     Indication: PROCEDURAL PAIN
     Dates: start: 19980101

REACTIONS (3)
  - CARDIO-RESPIRATORY ARREST [None]
  - LOSS OF CONSCIOUSNESS [None]
  - RESUSCITATION [None]
